FAERS Safety Report 7158049 (Version 2)
Quarter: 2014Q2

REPORT INFORMATION
  Report Type: Spontaneous
  Country: None (occurrence: None)
  Receive Date: 20091008
  Receipt Date: 20140415
  Transmission Date: 20141212
  Serious: Yes (Other)
  Sender: FDA-Public Use
  Company Number: AUR-APL-2009-00713

PATIENT
  Age: 52 Year
  Sex: Male

DRUGS (17)
  1. ZIDOVUDINE (ZIDOVUDINE) [Suspect]
     Indication: HIV INFECTION
  2. LAMIVUDINE (LAMIVUDINE) [Suspect]
     Indication: HIV INFECTION
  3. DIDANOSINE [Suspect]
     Indication: HIV INFECTION
  4. STAVUDINE [Suspect]
     Indication: HIV INFECTION
  5. ABACAVIR (ABACAVIR) [Suspect]
     Indication: HIV INFECTION
  6. NEVIRAPINE (NEVIRAPINE) [Suspect]
     Indication: HIV INFECTION
  7. DELAVIRDINE [Suspect]
     Indication: HIV INFECTION
  8. EFAVIRENZ (EFAVIRENZ) [Suspect]
     Indication: HIV INFECTION
  9. INDINAVIR [Suspect]
     Indication: HIV INFECTION
  10. SAQUINAVIR [Suspect]
     Indication: HIV INFECTION
  11. NELFINAVIR [Suspect]
     Indication: HIV INFECTION
  12. LOPINAVIR [Suspect]
     Indication: HIV INFECTION
  13. RITONAVIR [Suspect]
     Indication: HIV INFECTION
  14. TENOFOVIR [Suspect]
     Indication: HIV INFECTION
  15. DARUNAVIR [Suspect]
     Indication: HIV INFECTION
  16. ETRAVIRINE [Suspect]
     Indication: HIV INFECTION
  17. RALTEGRAVIR [Suspect]
     Indication: HIV INFECTION

REACTIONS (6)
  - Ophthalmoplegia [None]
  - Eyelid ptosis [None]
  - Mitochondrial toxicity [None]
  - Lipodystrophy acquired [None]
  - Diplopia [None]
  - Blood lactic acid increased [None]
